FAERS Safety Report 8275748-1 (Version None)
Quarter: 2012Q2

REPORT INFORMATION
  Report Type: 
  Country: None (occurrence: None)
  Receive Date: 20120410
  Receipt Date: 20120410
  Transmission Date: 20120825
  Serious: Yes (Hospitalization)
  Sender: FDA-Public Use
  Company Number: None

PATIENT
  Age: 63 Year
  Sex: Male
  Weight: 93 kg

DRUGS (1)
  1. PREDNISONE [Suspect]
     Indication: ANAEMIA HAEMOLYTIC AUTOIMMUNE
     Dosage: 20 MG EVERY DAY PO
     Route: 048
     Dates: start: 20110213, end: 20110225

REACTIONS (13)
  - ABDOMINAL PAIN [None]
  - PSYCHOTIC DISORDER [None]
  - UNRESPONSIVE TO STIMULI [None]
  - HYPERTHERMIA [None]
  - PORPHYRIA ACUTE [None]
  - INAPPROPRIATE ANTIDIURETIC HORMONE SECRETION [None]
  - ANXIETY [None]
  - FLUSHING [None]
  - REFUSAL OF TREATMENT BY PATIENT [None]
  - RESPIRATORY ALKALOSIS [None]
  - BLOOD PRESSURE SYSTOLIC INCREASED [None]
  - DISCOMFORT [None]
  - SEROTONIN SYNDROME [None]
